FAERS Safety Report 7422005-9 (Version None)
Quarter: 2011Q2

REPORT INFORMATION
  Report Type: 
  Country: None (occurrence: None)
  Receive Date: 20110418
  Receipt Date: 20110413
  Transmission Date: 20111010
  Serious: Yes (Hospitalization, Other)
  Sender: FDA-Public Use
  Company Number: US-PFIZER INC-2011079589

PATIENT
  Sex: Male
  Weight: 99.773 kg

DRUGS (6)
  1. PROZAC [Concomitant]
     Indication: DEPRESSION
     Dosage: 40 MG, 1X/DAY
     Dates: start: 20110208
  2. ANTABUSE [Concomitant]
     Dosage: UNK
  3. LYRICA [Suspect]
     Indication: NEURALGIA
     Dosage: 100 MG, 2X/DAY
     Route: 048
     Dates: start: 20110405, end: 20110410
  4. LYRICA [Suspect]
     Dosage: 100 MG, 2X/DAY
     Route: 048
     Dates: start: 20110401, end: 20110410
  5. LYRICA [Suspect]
     Dosage: 100-102 CAPSULES/3 DAYS
     Dates: start: 20110407, end: 20110410
  6. WELLBUTRIN [Concomitant]
     Indication: DEPRESSION
     Dosage: UNK

REACTIONS (2)
  - OVERDOSE [None]
  - ILL-DEFINED DISORDER [None]
